FAERS Safety Report 4891913-5 (Version None)
Quarter: 2006Q1

REPORT INFORMATION
  Report Type: 
  Country: None (occurrence: None)
  Receive Date: 20060124
  Receipt Date: 20060109
  Transmission Date: 20060701
  Serious: Yes (Death)
  Sender: FDA-Public Use
  Company Number: 2005-02544

PATIENT
  Age: 74 Year
  Sex: Male

DRUGS (1)
  1. VELCADE [Suspect]
     Indication: MULTIPLE MYELOMA
     Dosage: 1.00 MG/M2, INTRAVENOUS
     Route: 042
     Dates: start: 20051025, end: 20051025

REACTIONS (5)
  - CARDIAC ARREST [None]
  - CARDIAC FAILURE [None]
  - GASTROINTESTINAL TOXICITY [None]
  - MYOCARDIAL INFARCTION [None]
  - PAIN [None]
